FAERS Safety Report 11264654 (Version 4)
Quarter: 2015Q4

REPORT INFORMATION
  Report Type: Spontaneous
  Country: US (occurrence: US)
  Receive Date: 20150713
  Receipt Date: 20151103
  Transmission Date: 20160304
  Serious: No
  Sender: FDA-Public Use
  Company Number: US-PFIZER INC-2015225463

PATIENT
  Age: 6 Decade
  Sex: Female
  Weight: 65 kg

DRUGS (5)
  1. LETROZOLE. [Suspect]
     Active Substance: LETROZOLE
     Indication: BREAST CANCER METASTATIC
     Dosage: 2.5 MG, 1X/DAY (AM)
     Route: 048
     Dates: start: 2014
  2. LETROZOLE. [Suspect]
     Active Substance: LETROZOLE
     Dosage: 2.5 MG, 1X/DAY
     Route: 048
     Dates: start: 201406
  3. OXYCODONE-ACETAMINOPHEN [Concomitant]
     Active Substance: ACETAMINOPHEN\OXYCODONE HYDROCHLORIDE
     Indication: PAIN
     Dosage: 5 MG, 2X/DAY(ONCE AM, ONCE PM)
     Dates: start: 2014
  4. IBRANCE [Suspect]
     Active Substance: PALBOCICLIB
     Indication: BREAST CANCER METASTATIC
     Dosage: 100 MG, 1X/DAY, IN THE MORNING (AM)
     Dates: start: 201503
  5. IBRANCE [Suspect]
     Active Substance: PALBOCICLIB
     Indication: IMMUNISATION
     Dosage: 100 MG, CYCLIC (DAILY FOR 3 WEEKS)
     Dates: start: 201504

REACTIONS (5)
  - Rash pruritic [Unknown]
  - Erythema [Unknown]
  - Pruritus [Unknown]
  - Rash [Unknown]
  - Rash papular [Unknown]

NARRATIVE: CASE EVENT DATE: 201409
